FAERS Safety Report 14526335 (Version 4)
Quarter: 2018Q3

REPORT INFORMATION
  Report Type: Spontaneous
  Country: CA (occurrence: CA)
  Receive Date: 20180213
  Receipt Date: 20180904
  Transmission Date: 20181010
  Serious: Yes (Hospitalization, Other)
  Sender: FDA-Public Use
  Company Number: CA-CELLTRION INC.-2017CA007303

PATIENT

DRUGS (9)
  1. INFLECTRA [Suspect]
     Active Substance: INFLIXIMAB-DYYB
     Indication: COLITIS ULCERATIVE
     Dosage: 400 MG, CYCLIC (EVERY 0,2,6WEEKS, THEN EVERY 6 WEEKS)
     Route: 042
     Dates: start: 20170130
  2. INFLECTRA [Suspect]
     Active Substance: INFLIXIMAB-DYYB
     Dosage: 500 MG, CYCLIC
     Route: 042
     Dates: start: 20180202
  3. PREDNISONE. [Concomitant]
     Active Substance: PREDNISONE
     Dosage: 40 MG
     Route: 065
     Dates: start: 201609
  4. GOLIMUMAB [Suspect]
     Active Substance: GOLIMUMAB
     Indication: PRODUCT USED FOR UNKNOWN INDICATION
     Dosage: 50 MG, UNK
     Route: 065
  5. INFLECTRA [Suspect]
     Active Substance: INFLIXIMAB-DYYB
     Dosage: 500 MG, CYCLIC
     Route: 042
     Dates: start: 20180302, end: 20180302
  6. INFLECTRA [Suspect]
     Active Substance: INFLIXIMAB-DYYB
     Dosage: 500 MG THEN EVERY 4 WEEKS
     Route: 042
  7. INFLECTRA [Suspect]
     Active Substance: INFLIXIMAB-DYYB
     Dosage: 500 MG CYCLIC, (EVERY 2,6 WEEKS, THEN EVERY 4 WEEKS)
     Route: 042
     Dates: start: 20170130
  8. IMURAN [Concomitant]
     Active Substance: AZATHIOPRINE
     Dosage: 100 MG, UNK
     Route: 065
     Dates: start: 20161223
  9. INFLECTRA [Suspect]
     Active Substance: INFLIXIMAB-DYYB
     Dosage: 500 MG, CYCLIC (EVERY 0,2,6WEEKS, THEN EVERY 6 WEEKS)
     Route: 042
     Dates: start: 20180105

REACTIONS (13)
  - Weight decreased [Not Recovered/Not Resolved]
  - Rash [Not Recovered/Not Resolved]
  - Condition aggravated [Unknown]
  - Drug effect incomplete [Unknown]
  - Gastrointestinal infection [Recovering/Resolving]
  - Pyrexia [Unknown]
  - Diarrhoea [Unknown]
  - Product use issue [Unknown]
  - Drug effect decreased [Unknown]
  - Colitis ulcerative [Unknown]
  - Dry skin [Not Recovered/Not Resolved]
  - Drug level below therapeutic [Unknown]
  - Infection [Unknown]

NARRATIVE: CASE EVENT DATE: 2017
